FAERS Safety Report 6750273-5 (Version None)
Quarter: 2010Q2

REPORT INFORMATION
  Report Type: 
  Country: None (occurrence: None)
  Receive Date: 20100527
  Receipt Date: 20100518
  Transmission Date: 20101027
  Serious: Yes (Disabling)
  Sender: FDA-Public Use
  Company Number: CC10-366

PATIENT
  Age: 65 Year
  Sex: Female
  Weight: 68.0396 kg

DRUGS (3)
  1. KETOCONAZOLE [Suspect]
     Indication: DRY SKIN
     Dosage: 2-3 TIMES/WEEK
     Dates: start: 20090701, end: 20090701
  2. KETOCONAZOLE [Suspect]
     Indication: PRURITUS
     Dosage: 2-3 TIMES/WEEK
     Dates: start: 20090701, end: 20090701
  3. KETOCONAZOLE [Suspect]
     Indication: SKIN EXFOLIATION
     Dosage: 2-3 TIMES/WEEK
     Dates: start: 20090701, end: 20090701

REACTIONS (6)
  - DRUG HYPERSENSITIVITY [None]
  - EAR DISCOMFORT [None]
  - EAR PAIN [None]
  - ERYTHEMA [None]
  - NERVE INJURY [None]
  - UNEVALUABLE EVENT [None]
